FAERS Safety Report 9291196 (Version 3)
Quarter: 2013Q2

REPORT INFORMATION
  Report Type: Report from Study
  Country: CA (occurrence: CA)
  Receive Date: 20130515
  Receipt Date: 20130606
  Transmission Date: 20140414
  Serious: Yes (Hospitalization, Other)
  Sender: FDA-Public Use
  Company Number: CA-ABBOTT-13P-028-1089036-00

PATIENT
  Sex: Female

DRUGS (1)
  1. HUMIRA [Suspect]
     Indication: CROHN^S DISEASE
     Route: 058
     Dates: start: 20130107, end: 201305

REACTIONS (5)
  - Small intestinal obstruction [Unknown]
  - Crohn^s disease [Unknown]
  - Surgery [Unknown]
  - Pain [Not Recovered/Not Resolved]
  - Drug ineffective [Unknown]
